FAERS Safety Report 8546219-X (Version None)
Quarter: 2012Q3

REPORT INFORMATION
  Report Type: 
  Country: None (occurrence: None)
  Receive Date: 20120727
  Receipt Date: 20120712
  Transmission Date: 20120928
  Serious: Yes (Death)
  Sender: FDA-Public Use
  Company Number: US-ARROW-2012-12455

PATIENT
  Age: 52 Year
  Sex: Male
  Weight: 62 kg

DRUGS (2)
  1. ZOLPIDEM TARTRATE [Suspect]
     Indication: NEPHROLITHIASIS
     Dosage: 10 MG, SINGLE
     Route: 048
  2. HYDROMORPHONE HCL [Suspect]
     Indication: NEPHROLITHIASIS
     Dosage: 2 MG, Q2H
     Route: 042

REACTIONS (2)
  - DEATH [None]
  - POTENTIATING DRUG INTERACTION [None]
